FAERS Safety Report 24980612 (Version 1)
Quarter: 2025Q1

REPORT INFORMATION
  Report Type: Spontaneous
  Country: US (occurrence: None)
  Receive Date: 20250214
  Receipt Date: 20250214
  Transmission Date: 20250408
  Serious: Yes (Death)
  Sender: FDA-CTU
  Company Number: None

PATIENT
  Age: 64 Year
  Sex: Female

DRUGS (16)
  1. PIRFENIDONE [Suspect]
     Active Substance: PIRFENIDONE
     Indication: Idiopathic pulmonary fibrosis
     Dosage: FREQUENCY : TWICE A DAY;?
     Route: 048
     Dates: start: 20240119, end: 20240611
  2. ACYCLOVIR [Concomitant]
     Active Substance: ACYCLOVIR
  3. HALDOL [Concomitant]
     Active Substance: HALOPERIDOL
  4. METOCLOOPRAMIDE [Concomitant]
  5. AMITRIP-DIAZEP-DIGOX-MORPH-PB [Concomitant]
  6. NOXAFIL [Concomitant]
     Active Substance: POSACONAZOLE
  7. OXYCODONE [Concomitant]
     Active Substance: OXYCODONE
  8. SEPTRA [Concomitant]
     Active Substance: SULFAMETHOXAZOLE\TRIMETHOPRIM
  9. MORPHINE [Concomitant]
     Active Substance: MORPHINE
  10. LORAZEPAM [Concomitant]
     Active Substance: LORAZEPAM
  11. ACETAMINOPHEN [Concomitant]
     Active Substance: ACETAMINOPHEN
  12. BISACODYL [Concomitant]
     Active Substance: BISACODYL
  13. PREDNISONE [Concomitant]
     Active Substance: PREDNISONE
  14. CITALOPRAM [Concomitant]
     Active Substance: CITALOPRAM
  15. ALBUTEROL SULFATE [Concomitant]
     Active Substance: ALBUTEROL SULFATE
  16. PULMICORT TURBUHALER [Concomitant]
     Active Substance: BUDESONIDE

REACTIONS (2)
  - Off label use [None]
  - Drug ineffective [None]

NARRATIVE: CASE EVENT DATE: 20240828
